FAERS Safety Report 5269530-7 (Version None)
Quarter: 2007Q1

REPORT INFORMATION
  Report Type: 
  Country: None (occurrence: None)
  Receive Date: 20061213
  Receipt Date: 20031103
  Transmission Date: 20070707
  Serious: Yes (Other)
  Sender: FDA-Public Use
  Company Number: 2003UW13127

PATIENT
  Age: 53 Year
  Sex: Male
  Weight: 53.6152 kg

DRUGS (2)
  1. IRESSA [Suspect]
     Indication: NON-SMALL CELL LUNG CANCER
     Dosage: 250 MG QD PO
     Route: 048
     Dates: start: 20030818
  2. IBUPROFEN [Concomitant]

REACTIONS (5)
  - ASTHENOPIA [None]
  - COUGH [None]
  - FATIGUE [None]
  - PAIN [None]
  - WEIGHT DECREASED [None]
